FAERS Safety Report 15082548 (Version 2)
Quarter: 2019Q1

REPORT INFORMATION
  Report Type: Spontaneous
  Country: US (occurrence: US)
  Receive Date: 20180628
  Receipt Date: 20190212
  Transmission Date: 20190417
  Serious: No
  Sender: FDA-Public Use
  Company Number: US-MYLANLABS-2018M1045503

PATIENT

DRUGS (1)
  1. EPIPEN [Suspect]
     Active Substance: EPINEPHRINE
     Indication: HYPERSENSITIVITY
     Dosage: UNK
     Route: 058
     Dates: start: 20180619, end: 20180619

REACTIONS (2)
  - Expired product administered [None]
  - Accidental exposure to product [Unknown]

NARRATIVE: CASE EVENT DATE: 20180619
